FAERS Safety Report 9419072 (Version 2)
Quarter: 2013Q3

REPORT INFORMATION
  Report Type: Spontaneous
  Country: KR (occurrence: KR)
  Receive Date: 20130725
  Receipt Date: 20130805
  Transmission Date: 20140515
  Serious: Yes (Hospitalization)
  Sender: FDA-Public Use
  Company Number: PHHY2013KR078320

PATIENT
  Age: 73 Year
  Sex: Male
  Weight: 63.4 kg

DRUGS (2)
  1. CARBAMAZEPINE [Suspect]
     Indication: SYRINGOMYELIA
     Dosage: 150 MG, 2-3 TIMES DAILY
  2. CARBAMAZEPINE [Suspect]
     Dosage: UNK UKN, UNK

REACTIONS (4)
  - Hypertension [Recovering/Resolving]
  - Headache [Unknown]
  - Blood pressure inadequately controlled [Recovering/Resolving]
  - Echocardiogram abnormal [Unknown]
